FAERS Safety Report 5959765-X (Version None)
Quarter: 2008Q4

REPORT INFORMATION
  Report Type: 
  Country: None (occurrence: None)
  Receive Date: 20081112
  Receipt Date: 20071119
  Transmission Date: 20090506
  Serious: Yes (Other)
  Sender: FDA-Public Use
  Company Number: US-JNJFOC-20070305182

PATIENT
  Age: 88 Year
  Sex: Female

DRUGS (1)
  1. IBUPROFEN (IBUPROFEN) [Suspect]
     Indication: BACK PAIN
     Dosage: 1 DOSE(S), 1 IN 1 TOTAL

REACTIONS (2)
  - BURNING SENSATION [None]
  - TOXIC SKIN ERUPTION [None]
